FAERS Safety Report 25509630 (Version 1)
Quarter: 2025Q3

REPORT INFORMATION
  Report Type: Spontaneous
  Country: US (occurrence: US)
  Receive Date: 20250703
  Receipt Date: 20250703
  Transmission Date: 20251021
  Serious: No
  Sender: INNOGENIX, LLC
  Company Number: US-Innogenix, LLC-2179854

PATIENT

DRUGS (2)
  1. PROPRANOLOL HYDROCHLORIDE [Suspect]
     Active Substance: PROPRANOLOL HYDROCHLORIDE
     Indication: Product used for unknown indication
  2. METHIMAZOLE [Suspect]
     Active Substance: METHIMAZOLE

REACTIONS (2)
  - Decreased appetite [Unknown]
  - Cough [Unknown]
